FAERS Safety Report 8996502 (Version 4)
Quarter: 2013Q2

REPORT INFORMATION
  Report Type: Spontaneous
  Country: US (occurrence: US)
  Receive Date: 20130104
  Receipt Date: 20130626
  Transmission Date: 20140414
  Serious: No
  Sender: FDA-Public Use
  Company Number: US-009507513-1301USA001178

PATIENT
  Age: 20 Year
  Sex: Female
  Weight: 81.9 kg

DRUGS (1)
  1. NEXPLANON [Suspect]
     Indication: CONTRACEPTION
     Dosage: 1 ROD
     Route: 059
     Dates: start: 20121226

REACTIONS (3)
  - Device difficult to use [Recovered/Resolved with Sequelae]
  - Device difficult to use [Unknown]
  - No adverse event [Unknown]
